FAERS Safety Report 15943041 (Version 2)
Quarter: 2019Q1

REPORT INFORMATION
  Report Type: Report from Study
  Country: CO (occurrence: CO)
  Receive Date: 20190210
  Receipt Date: 20190222
  Transmission Date: 20190417
  Serious: Yes (Death)
  Sender: FDA-Public Use
  Company Number: PHHY2018CO140473

PATIENT
  Age: 15 Year
  Sex: Male

DRUGS (1)
  1. OMNITROPE [Suspect]
     Active Substance: SOMATROPIN
     Indication: GROWTH HORMONE DEFICIENCY
     Dosage: 2 MG, QD
     Route: 058
     Dates: start: 20160627

REACTIONS (2)
  - Completed suicide [Fatal]
  - Headache [Recovering/Resolving]

NARRATIVE: CASE EVENT DATE: 20190121
